FAERS Safety Report 9790635 (Version 1)
Quarter: 2013Q4

REPORT INFORMATION
  Report Type: Report from Study
  Country: US (occurrence: US)
  Receive Date: 20131231
  Receipt Date: 20131231
  Transmission Date: 20140711
  Serious: Yes (Hospitalization)
  Sender: FDA-Public Use
  Company Number: US-GLAXOSMITHKLINE-A1054870A

PATIENT
  Age: 49 Year
  Sex: Female
  Weight: 64.7 kg

DRUGS (4)
  1. LAPATINIB [Suspect]
     Indication: BREAST CANCER METASTATIC
     Dosage: 1000MG PER DAY
     Route: 048
     Dates: start: 20101028
  2. HERCEPTIN [Suspect]
     Indication: BREAST CANCER METASTATIC
     Dosage: 6MGK EVERY 3 WEEKS
     Route: 042
     Dates: start: 20101028
  3. LORAZEPAM [Concomitant]
     Indication: INSOMNIA
     Dosage: 1MG AT NIGHT
     Route: 048
  4. TRIAMCINOLONE ACETONIDE [Concomitant]
     Route: 045

REACTIONS (1)
  - Device related infection [Unknown]
